FAERS Safety Report 9338990 (Version 1)
Quarter: 2013Q2

REPORT INFORMATION
  Report Type: Spontaneous
  Country: US (occurrence: None)
  Receive Date: 20130529
  Receipt Date: 20130529
  Transmission Date: 20140414
  Serious: Yes (Other)
  Sender: FDA-Public Use
  Company Number: 2013036041

PATIENT
  Age: 24 Year
  Sex: Female
  Weight: 65.77 kg

DRUGS (3)
  1. BERINERT (CI ESTERASE INHIBITOR, HUMAN) [Suspect]
     Indication: HEREDITARY ANGIOEDEMA
     Dosage: 1500 IU PRN, 4 ML/MIN.
     Route: 042
  2. SODIUM CHLORIDE [Concomitant]
  3. EPI-PEN (EPINEPHRINE HYDROCHLORIDE) [Concomitant]

REACTIONS (1)
  - Gastrointestinal disorder [None]
